FAERS Safety Report 7266834-3 (Version None)
Quarter: 2011Q1

REPORT INFORMATION
  Report Type: 
  Country: None (occurrence: None)
  Receive Date: 20110201
  Receipt Date: 20110121
  Transmission Date: 20110831
  Serious: Yes (Disabling)
  Sender: FDA-Public Use
  Company Number: JP-JNJFOC-20100801892

PATIENT
  Sex: Female
  Weight: 47 kg

DRUGS (9)
  1. DOXIL [Suspect]
     Dosage: CYCLE 1
     Route: 042
  2. DEXALTIN [Concomitant]
     Indication: STOMATITIS
     Route: 061
  3. DOXIL [Suspect]
     Dosage: CYCLE 2
     Route: 042
  4. DOXIL [Suspect]
     Indication: OVARIAN CANCER RECURRENT
     Dosage: CYCLE 3
     Route: 042
  5. AZUNOL [Concomitant]
     Indication: STOMATITIS
     Route: 049
  6. DOXIL [Suspect]
     Dosage: CYCLE 4
     Route: 042
  7. ORGADRONE [Concomitant]
     Indication: NAUSEA
     Route: 042
  8. APHTHASOL [Concomitant]
     Indication: STOMATITIS
     Route: 003
  9. RAMELTEON [Concomitant]
     Indication: NAUSEA
     Route: 042

REACTIONS (5)
  - BLISTER [None]
  - CONSTIPATION [None]
  - ULCER [None]
  - STOMATITIS [None]
  - NAUSEA [None]
